FAERS Safety Report 18508861 (Version 1)
Quarter: 2020Q4

REPORT INFORMATION
  Report Type: Spontaneous
  Country: ES (occurrence: ES)
  Receive Date: 20201117
  Receipt Date: 20201117
  Transmission Date: 20210114
  Serious: Yes (Death, Other)
  Sender: FDA-Public Use
  Company Number: ES-SUN PHARMACEUTICAL INDUSTRIES LTD-2020RR-267850

PATIENT
  Age: 74 Year
  Sex: Female

DRUGS (3)
  1. CEFIXIME. [Suspect]
     Active Substance: CEFIXIME
     Indication: COVID-19
     Dosage: 400 MILLIGRAM, DAILY
     Route: 065
  2. LOPINAVIR/RITONAVIR [Suspect]
     Active Substance: LOPINAVIR\RITONAVIR
     Indication: COVID-19
     Dosage: UNK
     Route: 065
  3. HYDROXYCHLOROQUINE [Suspect]
     Active Substance: HYDROXYCHLOROQUINE
     Indication: COVID-19
     Dosage: UNK
     Route: 065

REACTIONS (2)
  - Anaphylactic shock [Fatal]
  - Off label use [Unknown]
